FAERS Safety Report 9623117 (Version 2)
Quarter: 2014Q2

REPORT INFORMATION
  Report Type: Spontaneous
  Country: IT (occurrence: None)
  Receive Date: 20131010
  Receipt Date: 20140410
  Transmission Date: 20141212
  Serious: Yes (Other)
  Sender: FDA-Public Use
  Company Number: IT-2013-2261

PATIENT
  Age: 44 Year
  Sex: Female
  Weight: 100 kg

DRUGS (3)
  1. NAVELBINE [Suspect]
     Indication: BREAST CANCER
     Dosage: CYCLICAL
     Route: 042
     Dates: start: 20130129, end: 20130606
  2. FLUOROURACILE [Suspect]
     Indication: BREAST CANCER
     Dosage: CYCLICAL
     Route: 042
     Dates: start: 20130129, end: 20130606
  3. CIPROXIN (CIPROFLOXACIN) [Concomitant]

REACTIONS (3)
  - Hypokalaemia [None]
  - Hyperpyrexia [None]
  - Haemoglobin decreased [None]
